FAERS Safety Report 25964574 (Version 1)
Quarter: 2025Q4

REPORT INFORMATION
  Report Type: Spontaneous
  Country: EU (occurrence: EU)
  Receive Date: 20251027
  Receipt Date: 20251027
  Transmission Date: 20260117
  Serious: Yes (Congenital Anomaly, Other)
  Sender: UCB
  Company Number: None

PATIENT
  Age: 29 Week
  Weight: 1.227 kg

DRUGS (7)
  1. LEVETIRACETAM [Suspect]
     Active Substance: LEVETIRACETAM
     Indication: Product used for unknown indication
     Dosage: UNK
  2. HYDROXYUREA [Suspect]
     Active Substance: HYDROXYUREA
     Indication: Polycythaemia vera
     Dosage: 1000 MILLIGRAM, ONCE DAILY (QD)
  3. XARELTO [Suspect]
     Active Substance: RIVAROXABAN
     Indication: Cerebrovascular accident
     Dosage: 20 MILLIGRAM, ONCE DAILY (QD)
  4. DAPAGLIFLOZIN [Suspect]
     Active Substance: DAPAGLIFLOZIN
     Indication: Heart failure with reduced ejection fraction
     Dosage: 10 MILLIGRAM, ONCE DAILY (QD)
  5. IRBESARTAN [Suspect]
     Active Substance: IRBESARTAN
     Indication: Heart failure with reduced ejection fraction
     Dosage: 300 MILLIGRAM, ONCE DAILY (QD)
  6. BISOPROLOL FUMARATE [Suspect]
     Active Substance: BISOPROLOL FUMARATE
     Indication: Product used for unknown indication
     Dosage: UNK
  7. LANSOPRAZOLE [Suspect]
     Active Substance: LANSOPRAZOLE
     Indication: Product used for unknown indication
     Dosage: UNK

REACTIONS (4)
  - Trisomy 21 [Not Recovered/Not Resolved]
  - Foetal growth restriction [Not Recovered/Not Resolved]
  - Premature baby [Not Recovered/Not Resolved]
  - Maternal exposure during pregnancy [Unknown]
